FAERS Safety Report 13702032 (Version 1)
Quarter: 2017Q2

REPORT INFORMATION
  Report Type: Spontaneous
  Country: US (occurrence: US)
  Receive Date: 20170629
  Receipt Date: 20170629
  Transmission Date: 20170830
  Serious: No
  Sender: FDA-Public Use
  Company Number: US-JNJFOC-20160902032

PATIENT
  Sex: Female

DRUGS (2)
  1. KETOCONAZOLE. [Suspect]
     Active Substance: KETOCONAZOLE
     Indication: TINEA CRURIS
     Dosage: 2%
     Route: 061
  2. KETOCONAZOLE. [Suspect]
     Active Substance: KETOCONAZOLE
     Indication: DANDRUFF
     Dosage: 2%
     Route: 061

REACTIONS (2)
  - Urticaria [Recovered/Resolved]
  - Burning sensation [Recovered/Resolved]
